FAERS Safety Report 5290210-6 (Version None)
Quarter: 2007Q2

REPORT INFORMATION
  Report Type: 
  Country: None (occurrence: None)
  Receive Date: 20070402
  Receipt Date: 20070316
  Transmission Date: 20071010
  Serious: Yes (Hospitalization, Other)
  Sender: FDA-Public Use
  Company Number: 2007SP004702

PATIENT
  Age: 41 Year
  Sex: Female

DRUGS (4)
  1. PEG-INTRON [Suspect]
     Indication: HEPATITIS C
     Dosage: PO
     Route: 048
     Dates: start: 20061127, end: 20070201
  2. PEG-INTRON [Suspect]
     Indication: HEPATITIS C
     Dosage: PO
     Route: 048
     Dates: start: 20070301
  3. RIBAVIRIN [Suspect]
     Indication: HEPATITIS C
     Dosage: PO
     Route: 048
     Dates: start: 20061127, end: 20070201
  4. RIBAVIRIN [Suspect]
     Indication: HEPATITIS C
     Dosage: PO
     Route: 048
     Dates: start: 20070301

REACTIONS (14)
  - ASTHENIA [None]
  - BACK PAIN [None]
  - BLISTER [None]
  - BLOOD PRESSURE INCREASED [None]
  - BONE PAIN [None]
  - BURNING SENSATION [None]
  - CHEST PAIN [None]
  - FATIGUE [None]
  - GLOSSITIS [None]
  - GLOSSODYNIA [None]
  - HEART RATE INCREASED [None]
  - MYALGIA [None]
  - PRURITUS [None]
  - SENSATION OF HEAVINESS [None]
